FAERS Safety Report 6016643-8 (Version None)
Quarter: 2008Q4

REPORT INFORMATION
  Report Type: 
  Country: None (occurrence: None)
  Receive Date: 20081222
  Receipt Date: 20081215
  Transmission Date: 20090506
  Serious: Yes (Other)
  Sender: FDA-Public Use
  Company Number: PHHY2008DE24681

PATIENT
  Age: 60 Year
  Sex: Female

DRUGS (4)
  1. RASILEZ [Suspect]
     Indication: HYPERTENSION
     Dosage: 150 MG, QD
     Dates: start: 20080901, end: 20081023
  2. RASILEZ [Suspect]
     Dosage: 300 MG, QD
     Dates: start: 20081024, end: 20081113
  3. ATACAND [Concomitant]
     Indication: HYPERTENSION
     Dosage: 16/12.5 MG/DAY
  4. BLOPRESS [Concomitant]
     Dosage: 32 MG DAILY

REACTIONS (2)
  - BLOOD PRESSURE INADEQUATELY CONTROLLED [None]
  - BLOOD PRESSURE SYSTOLIC INCREASED [None]
